FAERS Safety Report 8295070-7 (Version None)
Quarter: 2012Q2

REPORT INFORMATION
  Report Type: 
  Country: None (occurrence: None)
  Receive Date: 20120416
  Receipt Date: 20120412
  Transmission Date: 20120825
  Serious: Yes (Death)
  Sender: FDA-Public Use
  Company Number: ADR-2011-10918

PATIENT
  Age: 60 Year
  Sex: Male

DRUGS (5)
  1. CLONIDINE [Concomitant]
  2. LIORESAL [Suspect]
     Indication: MUSCLE SPASTICITY
     Dosage: 1080.6 MCG, DAILY INTR
     Route: 037
  3. KETAMINE HCL [Concomitant]
  4. DILAUDID [Concomitant]
  5. BUPIVACAINE HCL [Concomitant]

REACTIONS (1)
  - LUNG CANCER METASTATIC [None]
